FAERS Safety Report 9807129 (Version 1)
Quarter: 2014Q1

REPORT INFORMATION
  Report Type: Spontaneous
  Country: US (occurrence: US)
  Receive Date: 20140110
  Receipt Date: 20140110
  Transmission Date: 20141002
  Serious: No
  Sender: FDA-Public Use
  Company Number: US-009507513-1401USA003654

PATIENT
  Sex: Female
  Weight: 68.27 kg

DRUGS (2)
  1. NEXPLANON [Suspect]
     Indication: CONTRACEPTION
     Dosage: DOSE/FREQUENCY: EVERY 3 YEARS, 1 ROD, SUBDERMAL
     Route: 059
     Dates: start: 20130628
  2. LEXAPRO [Concomitant]

REACTIONS (1)
  - Menstruation irregular [Unknown]
